FAERS Safety Report 21940952 (Version 1)
Quarter: 2023Q1

REPORT INFORMATION
  Report Type: Spontaneous
  Country: DE (occurrence: DE)
  Receive Date: 20230202
  Receipt Date: 20230202
  Transmission Date: 20230417
  Serious: No
  Sender: FDA-Public Use
  Company Number: DE-EXELIXIS-CABO-22052923

PATIENT
  Sex: Male

DRUGS (1)
  1. CABOMETYX [Suspect]
     Active Substance: CABOZANTINIB S-MALATE
     Indication: Renal cancer metastatic
     Dosage: UNK
     Dates: start: 2022

REACTIONS (5)
  - Hypoaesthesia oral [Unknown]
  - Faeces hard [Unknown]
  - Oral pain [Unknown]
  - Taste disorder [Unknown]
  - Diarrhoea [Unknown]
